FAERS Safety Report 17451560 (Version 1)
Quarter: 2020Q1

REPORT INFORMATION
  Report Type: Spontaneous
  Country: US (occurrence: US)
  Receive Date: 20200224
  Receipt Date: 20200224
  Transmission Date: 20200409
  Serious: No
  Sender: FDA-Public Use
  Company Number: US-SA-2020SA047458

PATIENT
  Age: 64 Year
  Sex: Female

DRUGS (1)
  1. ARAVA [Suspect]
     Active Substance: LEFLUNOMIDE
     Dosage: UNK
     Route: 065

REACTIONS (5)
  - Rash [Unknown]
  - Urticaria [Unknown]
  - Hand deformity [Unknown]
  - Peripheral swelling [Unknown]
  - Pain in extremity [Unknown]
